FAERS Safety Report 6591125-3 (Version None)
Quarter: 2010Q1

REPORT INFORMATION
  Report Type: 
  Country: None (occurrence: None)
  Receive Date: 20100219
  Receipt Date: 20090112
  Transmission Date: 20100710
  Serious: No
  Sender: FDA-Public Use
  Company Number: US-BRISTOL-MYERS SQUIBB COMPANY-14467302

PATIENT
  Age: 22 Year
  Sex: Female
  Weight: 54 kg

DRUGS (3)
  1. KENALOG [Suspect]
     Indication: INFLUENZA
     Route: 030
     Dates: start: 20080116
  2. DEXAMETHASONE [Suspect]
     Indication: INFLUENZA
     Dosage: TAKEN AS INJECTION
     Route: 030
     Dates: start: 20080116
  3. VITAMINS [Concomitant]

REACTIONS (4)
  - INJECTION SITE ATROPHY [None]
  - INJECTION SITE DISCOLOURATION [None]
  - INSOMNIA [None]
  - PAIN [None]
